FAERS Safety Report 6408723-X (Version None)
Quarter: 2009Q4

REPORT INFORMATION
  Report Type: 
  Country: None (occurrence: None)
  Receive Date: 20091019
  Receipt Date: 20091007
  Transmission Date: 20100525
  Serious: Yes (Hospitalization, Other)
  Sender: FDA-Public Use
  Company Number: 2009AL006542

PATIENT
  Age: 83 Year
  Sex: Female

DRUGS (10)
  1. CITALOPRAM HYDROBROMIDE      (CITALOPRAM HYDROBROMIDE [Suspect]
     Indication: DEPRESSION
     Dosage: 20 MG;PO
     Route: 048
     Dates: start: 20090918, end: 20090926
  2. BENDROFLUMETHIAZIDE [Concomitant]
  3. CANDESARTAN CILEXETIL [Concomitant]
  4. CHLORAMBUCIL [Concomitant]
  5. ATENOLOL [Concomitant]
  6. SIMVASTATIN [Concomitant]
  7. ALLOPURINOL [Concomitant]
  8. LACTULOSE [Concomitant]
  9. SENNA [Concomitant]
  10. ACETAMINOPHEN [Concomitant]

REACTIONS (3)
  - BLOOD SODIUM DECREASED [None]
  - FATIGUE [None]
  - MALAISE [None]
